FAERS Safety Report 4584183-9 (Version None)
Quarter: 2005Q1

REPORT INFORMATION
  Report Type: 
  Country: None (occurrence: None)
  Receive Date: 20050125
  Receipt Date: 20041028
  Transmission Date: 20050727
  Serious: No
  Sender: FDA-Public Use
  Company Number: USA041082585

PATIENT
  Age: 87 Year
  Sex: Female

DRUGS (2)
  1. FORTEO [Suspect]
     Dates: start: 20030101
  2. CALCIUM GLUCONATE [Concomitant]

REACTIONS (2)
  - CONSTIPATION [None]
  - ONYCHORRHEXIS [None]
